FAERS Safety Report 12944280 (Version 1)
Quarter: 2016Q4

REPORT INFORMATION
  Report Type: Spontaneous
  Country: IT (occurrence: IT)
  Receive Date: 20161115
  Receipt Date: 20161115
  Transmission Date: 20170207
  Serious: Yes (Other)
  Sender: FDA-Public Use
  Company Number: IT-TEVA-712315ISR

PATIENT
  Sex: Female

DRUGS (2)
  1. IRINOTECAN ACTAVIS CONCENTRATE FOR SOLUTION FOR INFUSION 20MG/ML [Suspect]
     Active Substance: IRINOTECAN
     Route: 065
  2. OXALIPLATINO SUN [Suspect]
     Active Substance: OXALIPLATIN
     Route: 065

REACTIONS (3)
  - Oedema [Recovered/Resolved]
  - Formication [Recovered/Resolved]
  - Jaw disorder [Recovered/Resolved]
